FAERS Safety Report 11144173 (Version 2)
Quarter: 2015Q2

REPORT INFORMATION
  Report Type: Report from Study
  Country: US (occurrence: US)
  Receive Date: 20150526
  Receipt Date: 20150603
  Transmission Date: 20150821
  Serious: Yes (Hospitalization)
  Sender: FDA-Public Use
  Company Number: US-ABBVIE-15K-163-1394583-00

PATIENT
  Age: 63 Year
  Sex: Female
  Weight: 54.03 kg

DRUGS (8)
  1. HUMIRA [Suspect]
     Active Substance: ADALIMUMAB
     Route: 065
     Dates: start: 20150502
  2. PROTONIX [Concomitant]
     Active Substance: PANTOPRAZOLE SODIUM
     Indication: PROPHYLAXIS
  3. HUMIRA [Suspect]
     Active Substance: ADALIMUMAB
     Indication: CROHN^S DISEASE
     Route: 065
     Dates: start: 201202, end: 201411
  4. METOPROLOL [Concomitant]
     Active Substance: METOPROLOL
     Indication: HEART RATE IRREGULAR
  5. HUMIRA [Suspect]
     Active Substance: ADALIMUMAB
     Route: 065
     Dates: start: 201411, end: 20150411
  6. TEMTASA [Concomitant]
     Indication: CROHN^S DISEASE
     Dates: start: 2007
  7. PROTONIX [Concomitant]
     Active Substance: PANTOPRAZOLE SODIUM
     Indication: GASTRIC DISORDER
  8. AMBIEN [Concomitant]
     Active Substance: ZOLPIDEM TARTRATE
     Indication: INSOMNIA

REACTIONS (11)
  - Incorrect dose administered [Unknown]
  - Crohn^s disease [Recovering/Resolving]
  - Small intestinal obstruction [Recovering/Resolving]
  - Nausea [Recovered/Resolved]
  - Device issue [Unknown]
  - Drug ineffective [Not Recovered/Not Resolved]
  - Crohn^s disease [Recovered/Resolved]
  - Viral infection [Recovered/Resolved]
  - Crohn^s disease [Recovered/Resolved]
  - Pain [Recovered/Resolved]
  - Influenza [Recovered/Resolved]

NARRATIVE: CASE EVENT DATE: 20130218
